FAERS Safety Report 14472217 (Version 1)
Quarter: 2018Q1

REPORT INFORMATION
  Report Type: Report from Study
  Country: BR (occurrence: BR)
  Receive Date: 20180131
  Receipt Date: 20180131
  Transmission Date: 20180509
  Serious: Yes (Other)
  Sender: FDA-Public Use
  Company Number: BR-EMD SERONO-E2B_90003541

PATIENT
  Age: 23 Year
  Sex: Female

DRUGS (1)
  1. REBIF [Suspect]
     Active Substance: INTERFERON BETA-1A
     Indication: MULTIPLE SCLEROSIS
     Route: 058
     Dates: start: 20171016

REACTIONS (6)
  - Ocular discomfort [Unknown]
  - Asthenopia [Unknown]
  - Blindness unilateral [Recovering/Resolving]
  - Vision blurred [Not Recovered/Not Resolved]
  - Injection site erythema [Unknown]
  - Eye movement disorder [Unknown]

NARRATIVE: CASE EVENT DATE: 2017
